FAERS Safety Report 20897899 (Version 1)
Quarter: 2022Q2

REPORT INFORMATION
  Report Type: Spontaneous
  Country: US (occurrence: US)
  Receive Date: 20220531
  Receipt Date: 20220531
  Transmission Date: 20220721
  Serious: No
  Sender: FDA-Public Use
  Company Number: US-ORGANON-O2205USA002433

PATIENT
  Sex: Female
  Weight: 83.447 kg

DRUGS (2)
  1. NEXPLANON [Suspect]
     Active Substance: ETONOGESTREL
     Indication: Contraception
     Dosage: 1 ROD, 68 MG IN LEFT ARM
     Route: 059
     Dates: start: 20190530, end: 20220523
  2. NEXPLANON [Concomitant]
     Active Substance: ETONOGESTREL
     Dosage: UNK
     Route: 059
     Dates: start: 2016

REACTIONS (2)
  - Implant site scar [Not Recovered/Not Resolved]
  - Device breakage [Recovered/Resolved]
